FAERS Safety Report 12824477 (Version 2)
Quarter: 2016Q4

REPORT INFORMATION
  Report Type: Spontaneous
  Country: JP (occurrence: JP)
  Receive Date: 20161007
  Receipt Date: 20161027
  Transmission Date: 20170207
  Serious: Yes (Disabling)
  Sender: FDA-Public Use
  Company Number: JP-009507513-1610JPN002857

PATIENT
  Sex: Male

DRUGS (6)
  1. BENIDIPINE HYDROCHLORIDE [Concomitant]
     Active Substance: BENIDIPINE HYDROCHLORIDE
     Dosage: DAILY DOSAGE UNKNOWN, FORMULATION: POR
     Route: 048
  2. COPEGUS [Suspect]
     Active Substance: RIBAVIRIN
     Indication: CHRONIC HEPATITIS C
     Dosage: DAILY DOSAGE UNKNOWN
     Route: 048
     Dates: start: 20160502, end: 20160510
  3. MICARDIS [Concomitant]
     Active Substance: TELMISARTAN
     Dosage: DAILY DOSAGE UNKNOWN, FORMULATION: POR
     Route: 048
  4. COPEGUS [Suspect]
     Active Substance: RIBAVIRIN
     Dosage: 200 MG, DAILY (DIVIDED DOSE, FRQUENCY UNKNOWN)
     Route: 048
     Dates: start: 20160519, end: 2016
  5. THERAPY UNSPECIFIED [Suspect]
     Active Substance: UNSPECIFIED INGREDIENT
     Indication: CHRONIC HEPATITIS C
     Dosage: UNK
     Route: 048
  6. SOVALDI [Suspect]
     Active Substance: SOFOSBUVIR
     Indication: CHRONIC HEPATITIS C
     Dosage: 400 MG, DAILY (DIVIDED DOSE FREQUENCY UNKNOWN)
     Route: 048
     Dates: start: 20160502

REACTIONS (3)
  - Haemoglobin decreased [Recovered/Resolved]
  - Jaundice [Recovered/Resolved]
  - Blood bilirubin increased [Unknown]

NARRATIVE: CASE EVENT DATE: 20160510
